FAERS Safety Report 7679859-0 (Version None)
Quarter: 2011Q3

REPORT INFORMATION
  Report Type: 
  Country: None (occurrence: None)
  Receive Date: 20110812
  Receipt Date: 20110810
  Transmission Date: 20111222
  Serious: Yes (Hospitalization)
  Sender: FDA-Public Use
  Company Number: FR-PFIZER INC-2011183197

PATIENT
  Age: 88 Year
  Sex: Female

DRUGS (11)
  1. NEXIUM [Concomitant]
     Dosage: 20 MG, 1X/DAY
     Route: 048
  2. LASIX [Suspect]
     Dosage: 20 MG, 1X/DAY
     Route: 048
     Dates: end: 20110719
  3. NITROGLYCERIN [Suspect]
     Dosage: UNK
     Route: 003
     Dates: end: 20110719
  4. LEVOTHYROXINE SODIUM [Concomitant]
  5. ACUPAN [Suspect]
     Dosage: 5 MG, 1X/DAY
     Route: 048
     Dates: end: 20110719
  6. DIGOXIN [Concomitant]
  7. ATENOLOL [Concomitant]
  8. KETOCONAZOLE [Concomitant]
     Dosage: UNK
     Route: 003
     Dates: end: 20110719
  9. EFFEXOR XR [Suspect]
     Dosage: 37.5 MG, 1X/DAY
     Route: 048
     Dates: start: 20110621, end: 20110719
  10. PARACETAMOL [Concomitant]
  11. PREVISCAN [Concomitant]
     Dosage: 5 MG, 1X/DAY
     Route: 048

REACTIONS (5)
  - CONFUSIONAL STATE [None]
  - DEHYDRATION [None]
  - INTERNATIONAL NORMALISED RATIO INCREASED [None]
  - INFLAMMATION [None]
  - HYPONATRAEMIA [None]
